FAERS Safety Report 24700024 (Version 1)
Quarter: 2024Q4

REPORT INFORMATION
  Report Type: Spontaneous
  Country: US (occurrence: US)
  Receive Date: 20241205
  Receipt Date: 20241205
  Transmission Date: 20250115
  Serious: Yes (Other)
  Sender: NOVITIUM PHARMA
  Company Number: US-NOVITIUMPHARMA-2024USNVP02749

PATIENT
  Age: 30 Year
  Sex: Male

DRUGS (7)
  1. PREDNISONE [Suspect]
     Active Substance: PREDNISONE
     Indication: Nephrotic syndrome
  2. OBINUTUZUMAB [Concomitant]
     Active Substance: OBINUTUZUMAB
     Indication: Hypogammaglobulinaemia
  3. OBINUTUZUMAB [Concomitant]
     Active Substance: OBINUTUZUMAB
  4. TACROLIMUS [Concomitant]
     Active Substance: TACROLIMUS
     Indication: Pneumonia
     Dosage: 5-7 MUG/L
  5. DAPAGLIFLOZIN [Concomitant]
     Active Substance: DAPAGLIFLOZIN
     Indication: Pneumonia
  6. DARATUMUMAB [Concomitant]
     Active Substance: DARATUMUMAB
     Indication: Acute kidney injury
  7. RITUXIMAB [Concomitant]
     Active Substance: RITUXIMAB

REACTIONS (2)
  - Retinal detachment [Unknown]
  - Drug ineffective [Unknown]
